FAERS Safety Report 5104233-0 (Version None)
Quarter: 2006Q3

REPORT INFORMATION
  Report Type: 
  Country: None (occurrence: None)
  Receive Date: 20060911
  Receipt Date: 20060824
  Transmission Date: 20061208
  Serious: Yes (Hospitalization)
  Sender: FDA-Public Use
  Company Number: MEDI-0004747

PATIENT

DRUGS (4)
  1. SYNAGIS [Suspect]
     Indication: ANTIVIRAL PROPHYLAXIS
     Dosage: 195 MG, INTRAMUSCULAR (SEE IMAGE)
     Route: 030
     Dates: start: 20051006, end: 20060109
  2. SYNAGIS [Suspect]
     Indication: ANTIVIRAL PROPHYLAXIS
     Dosage: 195 MG, INTRAMUSCULAR (SEE IMAGE)
     Route: 030
     Dates: start: 20051006
  3. SYNAGIS [Suspect]
     Indication: ANTIVIRAL PROPHYLAXIS
     Dosage: 195 MG, INTRAMUSCULAR (SEE IMAGE)
     Route: 030
     Dates: start: 20051104
  4. SYNAGIS [Suspect]
     Indication: ANTIVIRAL PROPHYLAXIS
     Dosage: 195 MG, INTRAMUSCULAR (SEE IMAGE)
     Route: 030
     Dates: start: 20051215

REACTIONS (1)
  - ARTHRITIS [None]
